FAERS Safety Report 13486234 (Version 2)
Quarter: 2020Q3

REPORT INFORMATION
  Report Type: Report from Study
  Country: PL (occurrence: PL)
  Receive Date: 20170426
  Receipt Date: 20170428
  Transmission Date: 20201104
  Serious: Yes (Hospitalization)
  Sender: FDA-Public Use
  Company Number: PL-JNJFOC-20160806393

PATIENT
  Age: 39 Year
  Sex: Male
  Weight: 87 kg

DRUGS (3)
  1. GOLIMUMAB [Suspect]
     Active Substance: GOLIMUMAB
     Indication: PSORIATIC ARTHROPATHY
     Route: 042
     Dates: start: 20151126
  2. GOLIMUMAB [Suspect]
     Active Substance: GOLIMUMAB
     Route: 042
  3. MOVALIS [Concomitant]
     Active Substance: MELOXICAM
     Route: 048

REACTIONS (4)
  - Facial bones fracture [Recovered/Resolved]
  - Epidural haemorrhage [Recovered/Resolved]
  - Forearm fracture [Recovered/Resolved]
  - Skull fracture [Recovered/Resolved]

NARRATIVE: CASE EVENT DATE: 20160713
